FAERS Safety Report 4734615-8 (Version None)
Quarter: 2005Q3

REPORT INFORMATION
  Report Type: 
  Country: None (occurrence: None)
  Receive Date: 20050729
  Receipt Date: 20050722
  Transmission Date: 20060218
  Serious: Yes (Death, Hospitalization)
  Sender: FDA-Public Use
  Company Number: 05-NIP00063

PATIENT
  Age: 69 Year
  Sex: Female
  Weight: 70.3075 kg

DRUGS (18)
  1. NIPENT [Suspect]
     Indication: CHRONIC LYMPHOCYTIC LEUKAEMIA
     Dosage: 0.3333 MG (7 MG, Q3WEEKS), INTRAVENOUS
     Route: 042
     Dates: start: 20050601, end: 20050622
  2. RITUXAN [Suspect]
     Indication: CHRONIC LYMPHOCYTIC LEUKAEMIA
     Dosage: 31.4286 MG (660 MG, Q3WEEKS), INTRAVENOUS
     Route: 042
     Dates: start: 20050601, end: 20050622
  3. CYTOXAN [Suspect]
     Indication: CHRONIC LYMPHOCYTIC LEUKAEMIA
     Dosage: 50.2857 MG (1056 MG, Q3WEEKS),INTRAVENOUS
     Route: 042
     Dates: start: 20050601, end: 20050622
  4. SYNTHROID [Concomitant]
  5. ATENOLOL [Concomitant]
  6. DIOVAN [Concomitant]
  7. LIPITOR [Concomitant]
  8. PHENERGAN [Concomitant]
  9. ALLOPURINOL [Concomitant]
  10. ACYCLOVIR [Concomitant]
  11. BACTRIM [Concomitant]
  12. KYTRIL [Concomitant]
  13. EMEND [Concomitant]
  14. POTASSIUM CHLORIDE [Concomitant]
  15. LASIX [Concomitant]
  16. TYLENOL (CAPLET) [Concomitant]
  17. IMIPENEM [Concomitant]
  18. ALDACTONE [Concomitant]

REACTIONS (8)
  - CHILLS [None]
  - HYPOTENSION [None]
  - NAUSEA [None]
  - OLIGURIA [None]
  - PYREXIA [None]
  - SEPSIS [None]
  - SEPTIC SHOCK [None]
  - VOMITING [None]
